FAERS Safety Report 8601297-4 (Version None)
Quarter: 2012Q3

REPORT INFORMATION
  Report Type: 
  Country: None (occurrence: None)
  Receive Date: 20120817
  Receipt Date: 20120808
  Transmission Date: 20120928
  Serious: Yes (Hospitalization)
  Sender: FDA-Public Use
  Company Number: US-JNJFOC-20120805801

PATIENT
  Sex: Female
  Weight: 39.9 kg

DRUGS (5)
  1. VITAMIN D [Concomitant]
  2. IRON [Concomitant]
  3. MULTI-VITAMINS [Concomitant]
  4. REMICADE [Suspect]
     Indication: CROHN'S DISEASE
     Route: 042
  5. MESALAMINE [Concomitant]

REACTIONS (1)
  - CHOLELITHIASIS [None]
